FAERS Safety Report 9630983 (Version 2)
Quarter: 2013Q4

REPORT INFORMATION
  Report Type: Spontaneous
  Country: JP (occurrence: JP)
  Receive Date: 20131018
  Receipt Date: 20131018
  Transmission Date: 20140711
  Serious: Yes (Hospitalization, Other)
  Sender: FDA-Public Use
  Company Number: JP-PFIZER INC-2013283729

PATIENT
  Age: 9 Decade
  Sex: Male

DRUGS (1)
  1. CABASER [Suspect]
     Dosage: UNK

REACTIONS (2)
  - Cardiac valve disease [Unknown]
  - Papillary thyroid cancer [Unknown]
